FAERS Safety Report 9461519 (Version 1)
Quarter: 2013Q3

REPORT INFORMATION
  Report Type: Spontaneous
  Country: US (occurrence: None)
  Receive Date: 20130814
  Receipt Date: 20130814
  Transmission Date: 20140515
  Serious: Yes (Hospitalization)
  Sender: FDA-Public Use
  Company Number: None

PATIENT
  Age: 90 Year
  Sex: Female
  Weight: 90.72 kg

DRUGS (1)
  1. ARICEPT [Suspect]
     Indication: DEMENTIA
     Dates: start: 20130718

REACTIONS (9)
  - Chest pain [None]
  - Chest discomfort [None]
  - Dyspnoea [None]
  - Nausea [None]
  - Vomiting [None]
  - Atrial fibrillation [None]
  - Blood pressure inadequately controlled [None]
  - Heart rate decreased [None]
  - Blood glucose decreased [None]
